FAERS Safety Report 9245495 (Version 2)
Quarter: 2013Q2

REPORT INFORMATION
  Report Type: Spontaneous
  Country: CA (occurrence: CA)
  Receive Date: 20130422
  Receipt Date: 20130422
  Transmission Date: 20140414
  Serious: Yes (Other)
  Sender: FDA-Public Use
  Company Number: CA-JNJFOC-20130406746

PATIENT
  Age: 47 Year
  Sex: Male
  Weight: 86.18 kg

DRUGS (2)
  1. NIZORAL A-D SHAMPOO [Suspect]
     Route: 061
  2. NIZORAL A-D SHAMPOO [Suspect]
     Indication: SEBORRHOEIC DERMATITIS
     Route: 061
     Dates: start: 20130409, end: 20130409

REACTIONS (7)
  - Eye burns [Recovering/Resolving]
  - Ocular hyperaemia [Not Recovered/Not Resolved]
  - Eye irritation [Recovering/Resolving]
  - Product tampering [Unknown]
  - Drug administered at inappropriate site [Unknown]
  - Accidental exposure to product [Unknown]
  - Scratch [Unknown]
